FAERS Safety Report 26063593 (Version 1)
Quarter: 2025Q4

REPORT INFORMATION
  Report Type: Spontaneous
  Country: US (occurrence: None)
  Receive Date: 20251118
  Receipt Date: 20251118
  Transmission Date: 20260118
  Serious: Yes (Disabling)
  Sender: FDA-CTU
  Company Number: None

PATIENT
  Age: 32 Year
  Sex: Female
  Weight: 81 kg

DRUGS (2)
  1. SOFDRA [Suspect]
     Active Substance: SOFPIRONIUM BROMIDE
     Indication: Hyperhidrosis
     Dosage: OTHER QUANTITY : 1 ONE PUMP;?FREQUENCY : AT BEDTIME;?
     Route: 061
     Dates: start: 20251116, end: 20251117
  2. VITAMIN D3 [Concomitant]
     Active Substance: CHOLECALCIFEROL

REACTIONS (3)
  - Dry mouth [None]
  - Vision blurred [None]
  - Dysuria [None]

NARRATIVE: CASE EVENT DATE: 20251118
